FAERS Safety Report 5359462-8 (Version None)
Quarter: 2007Q2

REPORT INFORMATION
  Report Type: 
  Country: None (occurrence: None)
  Receive Date: 20070615
  Receipt Date: 20070605
  Transmission Date: 20071010
  Serious: Yes (Hospitalization)
  Sender: FDA-Public Use
  Company Number: IT-PFIZER INC-2007044422

PATIENT
  Sex: Female

DRUGS (6)
  1. SUTENT [Suspect]
     Indication: RENAL CELL CARCINOMA STAGE UNSPECIFIED
     Route: 048
     Dates: start: 20070226, end: 20070512
  2. CARBIDOPA [Concomitant]
  3. RASAGILINE [Concomitant]
  4. AMANTADINE HCL [Concomitant]
  5. SINEMET [Concomitant]
  6. ZOLPIDEM [Concomitant]

REACTIONS (4)
  - ABSCESS [None]
  - ANAEMIA [None]
  - MUCOSAL INFLAMMATION [None]
  - THROMBOCYTOPENIA [None]
